FAERS Safety Report 17707184 (Version 3)
Quarter: 2024Q3

REPORT INFORMATION
  Report Type: Spontaneous
  Country: CN (occurrence: CN)
  Receive Date: 20200424
  Receipt Date: 20240812
  Transmission Date: 20241017
  Serious: Yes (Hospitalization, Other)
  Sender: ACCORD
  Company Number: CN-ACCORD-179562

PATIENT
  Age: 76 Year
  Sex: Female

DRUGS (5)
  1. PIOGLITAZONE [Interacting]
     Active Substance: PIOGLITAZONE
     Indication: Type 2 diabetes mellitus
     Dosage: 15 MG ONCE A DAY
  2. INSULIN LISPRO [Interacting]
     Active Substance: INSULIN LISPRO
     Indication: Type 2 diabetes mellitus
  3. ACARBOSE [Concomitant]
     Active Substance: ACARBOSE
     Indication: Type 2 diabetes mellitus
     Dosage: 50 MG THREE TIMES A DAY
  4. OLMESARTAN [Concomitant]
     Active Substance: OLMESARTAN
     Indication: Hypertension
  5. ASPIRIN [Concomitant]
     Active Substance: ASPIRIN
     Indication: Cerebral infarction

REACTIONS (3)
  - Pleural effusion [Recovered/Resolved]
  - Drug interaction [Unknown]
  - Generalised oedema [Recovering/Resolving]
